FAERS Safety Report 8024039-2 (Version None)
Quarter: 2012Q1

REPORT INFORMATION
  Report Type: 
  Country: None (occurrence: None)
  Receive Date: 20120105
  Receipt Date: 20111229
  Transmission Date: 20120608
  Serious: Yes (Other)
  Sender: FDA-Public Use
  Company Number: DE-JNJFOC-20120100130

PATIENT
  Sex: Female
  Weight: 52 kg

DRUGS (1)
  1. RISPERDAL [Suspect]
     Indication: PRODUCT USED FOR UNKNOWN INDICATION
     Route: 048
     Dates: start: 20111228, end: 20111228

REACTIONS (7)
  - SYNCOPE [None]
  - HEADACHE [None]
  - VERTIGO [None]
  - SUICIDE ATTEMPT [None]
  - FALL [None]
  - INTENTIONAL OVERDOSE [None]
  - MATERNAL EXPOSURE DURING PREGNANCY [None]
